FAERS Safety Report 8585789-2 (Version None)
Quarter: 2012Q3

REPORT INFORMATION
  Report Type: 
  Country: None (occurrence: None)
  Receive Date: 20120810
  Receipt Date: 20120807
  Transmission Date: 20120928
  Serious: Yes (Hospitalization)
  Sender: FDA-Public Use
  Company Number: IN-ROXANE LABORATORIES, INC.-2012-RO-01649RO

PATIENT
  Age: 57 Year
  Sex: Female

DRUGS (3)
  1. QUETIAPINE FUMARATE [Suspect]
     Indication: BIPOLAR DISORDER
     Dosage: 50 MG
  2. LITHIUM CARBONATE [Suspect]
     Indication: BIPOLAR DISORDER
     Dosage: 800 MG
  3. CLONAZEPAM [Suspect]
     Indication: BIPOLAR DISORDER
     Dosage: 0.5 MG

REACTIONS (2)
  - TOXICITY TO VARIOUS AGENTS [None]
  - OPSOCLONUS MYOCLONUS [None]
